FAERS Safety Report 8333122-3 (Version None)
Quarter: 2012Q2

REPORT INFORMATION
  Report Type: 
  Country: None (occurrence: None)
  Receive Date: 20120503
  Receipt Date: 20120427
  Transmission Date: 20120825
  Serious: Yes (Other)
  Sender: FDA-Public Use
  Company Number: DE-SANOFI-AVENTIS-2012SA029979

PATIENT
  Age: 86 Year
  Sex: Female

DRUGS (2)
  1. MARCUMAR [Concomitant]
     Indication: ATRIAL FIBRILLATION
  2. ENOXAPARIN SODIUM [Suspect]
     Indication: ATRIAL FIBRILLATION
     Route: 058

REACTIONS (2)
  - NEPHROPATHY TOXIC [None]
  - BLOOD CREATININE INCREASED [None]
